FAERS Safety Report 8826606 (Version 1)
Quarter: 2012Q4

REPORT INFORMATION
  Report Type: 
  Country: US (occurrence: US)
  Receive Date: 20121007
  Receipt Date: 20121007
  Transmission Date: 20130627
  Serious: Yes (Other)
  Sender: FDA-Public Use
  Company Number: PHHY2011US117350

PATIENT
  Sex: Female

DRUGS (3)
  1. METOPROLOL [Suspect]
  2. DIGOXIN [Suspect]
  3. NITROGLYCERIN [Suspect]

REACTIONS (4)
  - Cardiomyopathy [Unknown]
  - Oligohydramnios [Unknown]
  - Vaginal infection [Unknown]
  - Exposure during pregnancy [Unknown]
